FAERS Safety Report 4865743-4 (Version None)
Quarter: 2005Q4

REPORT INFORMATION
  Report Type: 
  Country: None (occurrence: None)
  Receive Date: 20051223
  Receipt Date: 20051219
  Transmission Date: 20060501
  Serious: Yes (Hospitalization)
  Sender: FDA-Public Use
  Company Number: PHRM2005FR03294

PATIENT
  Age: 67 Year
  Sex: Male
  Weight: 72 kg

DRUGS (6)
  1. NEURONTIN [Suspect]
     Indication: EPILEPSY
     Dosage: 1200 MG, TID
     Route: 048
     Dates: end: 20050601
  2. ATARAX [Suspect]
     Indication: ANXIETY
     Dosage: 50 MG, QD
     Route: 048
     Dates: start: 20050615, end: 20050601
  3. LIORESAL [Suspect]
     Indication: QUADRIPARESIS
     Dosage: 10 MG, 6QD
     Route: 048
     Dates: end: 20050624
  4. TRIVASTAL [Concomitant]
     Dosage: 50 MG, QD
     Route: 048
     Dates: end: 20050621
  5. HEXAQUINE [Concomitant]
     Route: 054
     Dates: end: 20050615
  6. SEROPRAM [Concomitant]
     Indication: DYSTHYMIC DISORDER
     Dosage: 20 MG, QD
     Route: 048

REACTIONS (7)
  - ABNORMAL BEHAVIOUR [None]
  - C-REACTIVE PROTEIN INCREASED [None]
  - CONFUSIONAL STATE [None]
  - DRUG INTERACTION [None]
  - HALLUCINATION [None]
  - PYREXIA [None]
  - URINARY TRACT INFECTION [None]
